FAERS Safety Report 23036644 (Version 1)
Quarter: 2023Q4

REPORT INFORMATION
  Report Type: Spontaneous
  Country: NO (occurrence: NO)
  Receive Date: 20231006
  Receipt Date: 20231006
  Transmission Date: 20240110
  Serious: Yes (Hospitalization, Other)
  Sender: FDA-Public Use
  Company Number: None

PATIENT

DRUGS (7)
  1. CLOBETASOL PROPIONATE [Suspect]
     Active Substance: CLOBETASOL PROPIONATE
     Indication: Product used for unknown indication
     Dosage: 1 DOSAGE FORM
     Route: 065
  2. IBRUTINIB [Concomitant]
     Active Substance: IBRUTINIB
     Indication: Product used for unknown indication
     Dosage: 420 MG
     Route: 065
     Dates: start: 202111, end: 202203
  3. RUXOLITINIB [Concomitant]
     Active Substance: RUXOLITINIB
     Indication: Acute graft versus host disease
     Dosage: 5 MILLIGRAM, BID
     Route: 065
     Dates: start: 201905
  4. RUXOLITINIB [Concomitant]
     Active Substance: RUXOLITINIB
     Dosage: 10 MILLIGRAM, BID
     Route: 065
     Dates: start: 201909
  5. RUXOLITINIB [Concomitant]
     Active Substance: RUXOLITINIB
     Dosage: 1 DOSAGE FORM
     Route: 065
     Dates: start: 202209
  6. RUXOLITINIB [Concomitant]
     Active Substance: RUXOLITINIB
     Dosage: 10 MG, BID
     Route: 065
     Dates: start: 202302
  7. TACROLIMUS [Concomitant]
     Active Substance: TACROLIMUS
     Indication: Product used for unknown indication
     Dosage: 1 DOSAGE FORM
     Route: 061
     Dates: start: 201909

REACTIONS (24)
  - Graft versus host disease in skin [Unknown]
  - Ecthyma [Unknown]
  - Cytomegalovirus infection [Unknown]
  - Sepsis [Unknown]
  - Pyrexia [Unknown]
  - Graft versus host disease oral [Unknown]
  - Ulcer [Unknown]
  - Morphoea [Unknown]
  - Hepatic enzyme increased [Unknown]
  - Fibrosis [Unknown]
  - Malnutrition [Unknown]
  - Cholelithiasis [Unknown]
  - Wound infection [Unknown]
  - Anaemia [Unknown]
  - Dyspnoea [Not Recovered/Not Resolved]
  - Musculoskeletal stiffness [Unknown]
  - Mouth ulceration [Unknown]
  - Drug intolerance [Unknown]
  - Arthralgia [Unknown]
  - Inflammation [Unknown]
  - Vomiting [Unknown]
  - Nausea [Unknown]
  - Dry skin [Unknown]
  - Alopecia [Unknown]

NARRATIVE: CASE EVENT DATE: 20190501
